FAERS Safety Report 9657992 (Version 3)
Quarter: 2013Q4

REPORT INFORMATION
  Report Type: Report from Study
  Country: CA (occurrence: CA)
  Receive Date: 20131030
  Receipt Date: 20131203
  Transmission Date: 20140711
  Serious: Yes (Hospitalization, Other)
  Sender: FDA-Public Use
  Company Number: CA-ABBVIE-13P-028-1162607-00

PATIENT
  Sex: Female
  Weight: 90.8 kg

DRUGS (21)
  1. HUMIRA [Suspect]
     Indication: PSORIASIS
     Route: 058
     Dates: start: 20130719, end: 201309
  2. HUMIRA [Suspect]
     Route: 058
     Dates: start: 201310
  3. METFORMIN [Concomitant]
     Indication: DIABETES MELLITUS
     Route: 048
  4. FUROSEMIDE [Concomitant]
     Indication: FLUID RETENTION
     Route: 048
  5. OMEPRAZOLE [Concomitant]
     Indication: GASTRIC ULCER
     Route: 048
  6. SYNTHROID [Concomitant]
     Indication: HYPOTHYROIDISM
     Route: 048
  7. ASPIRIN [Concomitant]
     Indication: ANTICOAGULANT THERAPY
     Route: 048
  8. IRDESARTAN [Concomitant]
     Indication: HYPERTENSION
     Route: 048
  9. NOVOLIN [Concomitant]
     Indication: DIABETES MELLITUS
     Route: 058
  10. NOVORAPID [Concomitant]
     Indication: DIABETES MELLITUS
     Route: 058
  11. AMLODIPINE [Concomitant]
     Indication: HYPERTENSION
     Route: 048
  12. PALAFER [Concomitant]
     Indication: IRON DEFICIENCY
     Route: 048
  13. CENTRUM [Concomitant]
     Indication: VITAMIN SUPPLEMENTATION
     Route: 048
  14. CLOTRIMAZOLE [Concomitant]
     Indication: PRODUCT USED FOR UNKNOWN INDICATION
  15. DOCUSATE SODIUM [Concomitant]
     Indication: PRODUCT USED FOR UNKNOWN INDICATION
  16. FUROSEMIDE [Concomitant]
     Indication: PRODUCT USED FOR UNKNOWN INDICATION
  17. INSULIN LISPRO [Concomitant]
     Route: 058
  18. INSULIN N [Concomitant]
     Indication: PRODUCT USED FOR UNKNOWN INDICATION
     Route: 058
  19. ZIPICLONE [Concomitant]
     Indication: PRODUCT USED FOR UNKNOWN INDICATION
  20. METOCLOPRAMIDE [Concomitant]
     Dosage: EVERY 6 HOURS AS NEEDED
  21. IBESARTAN [Concomitant]
     Indication: PRODUCT USED FOR UNKNOWN INDICATION

REACTIONS (3)
  - Dizziness [Recovered/Resolved]
  - Dyspnoea [Recovered/Resolved]
  - Drug ineffective [Unknown]
